FAERS Safety Report 12088375 (Version 1)
Quarter: 2016Q1

REPORT INFORMATION
  Report Type: Spontaneous
  Country: GB (occurrence: GB)
  Receive Date: 20160218
  Receipt Date: 20160218
  Transmission Date: 20160526
  Serious: Yes (Other)
  Sender: FDA-Public Use
  Company Number: GB-009507513-1602GBR007817

PATIENT
  Age: 52 Year
  Sex: Female
  Weight: 54.42 kg

DRUGS (5)
  1. ALBUTEROL SULFATE. [Concomitant]
     Active Substance: ALBUTEROL SULFATE
  2. LORATADINE. [Concomitant]
     Active Substance: LORATADINE
  3. ACETAMINOPHEN AND CODEINE [Concomitant]
     Active Substance: ACETAMINOPHEN\CODEINE PHOSPHATE
  4. DIAZEPAM. [Concomitant]
     Active Substance: DIAZEPAM
  5. MIRTAZAPINE. [Suspect]
     Active Substance: MIRTAZAPINE
     Indication: SUICIDAL BEHAVIOUR
     Dosage: AT NIGHT
     Route: 048
     Dates: start: 20151217, end: 20160114

REACTIONS (2)
  - Epilepsy [Recovering/Resolving]
  - Eczema [Recovering/Resolving]

NARRATIVE: CASE EVENT DATE: 20151218
